FAERS Safety Report 4542291-2 (Version None)
Quarter: 2004Q4

REPORT INFORMATION
  Report Type: 
  Country: None (occurrence: None)
  Receive Date: 20041227
  Receipt Date: 20041215
  Transmission Date: 20050328
  Serious: Yes (Other)
  Sender: FDA-Public Use
  Company Number: 2004113482

PATIENT
  Age: 57 Year
  Sex: Female
  Weight: 74.8435 kg

DRUGS (2)
  1. CELEBREX [Suspect]
     Indication: ARTHRITIS
     Dosage: ORAL
     Route: 048
     Dates: start: 20020101, end: 20030101
  2. ROFECOXIB [Suspect]
     Indication: ARTHRITIS
     Dates: start: 20030101, end: 20040101

REACTIONS (2)
  - ARTHRITIS [None]
  - DRUG INEFFECTIVE [None]
